FAERS Safety Report 9306457 (Version 3)
Quarter: 2013Q4

REPORT INFORMATION
  Report Type: Spontaneous
  Country: DE (occurrence: None)
  Receive Date: 20130305
  Receipt Date: 20131217
  Transmission Date: 20140711
  Serious: Yes (Other)
  Sender: FDA-Public Use
  Company Number: US-2012-11675

PATIENT
  Age: 52 Year
  Sex: Male

DRUGS (9)
  1. OPC-41061 [Suspect]
     Indication: CONGENITAL CYSTIC KIDNEY DISEASE
     Route: 048
     Dates: start: 20081219, end: 20121114
  2. BIOPRESS (CANDESARTAN CILEXETIL) [Concomitant]
  3. AMLODIPIN (AMLODIPINE BESILATE) [Concomitant]
  4. DEKRISTOL (COLECALCIFEROL) [Concomitant]
  5. THOMAPYRIN (ACETYLSALICYLIC ACID, CAFFEINE, PHENACETIN) [Concomitant]
  6. DECOSTRIOL (CALCITRIOL) [Concomitant]
  7. GELONIDA (CODEINE PHOSPHATE, PARACETAMOL) [Concomitant]
  8. ASPIRIN (ASPIRIN) [Concomitant]
  9. HALCION (TRIAZOLAM) [Concomitant]

REACTIONS (4)
  - Blood creatinine abnormal [None]
  - Glomerular filtration rate decreased [None]
  - Dialysis [None]
  - Renal failure chronic [None]
